FAERS Safety Report 6832249-2 (Version None)
Quarter: 2010Q3

REPORT INFORMATION
  Report Type: 
  Country: None (occurrence: None)
  Receive Date: 20100712
  Receipt Date: 20100705
  Transmission Date: 20110219
  Serious: Yes (Hospitalization)
  Sender: FDA-Public Use
  Company Number: FR-ASTRAZENECA-2010SE31614

PATIENT
  Age: 57 Year
  Sex: Female

DRUGS (7)
  1. ARIMIDEX [Suspect]
     Indication: BREAST CANCER
     Route: 048
     Dates: start: 20060101
  2. EPIRUBICIN [Suspect]
     Indication: BREAST CANCER
     Dosage: 100 MG/M2, THREE COURSES
     Route: 042
     Dates: start: 20050901, end: 20050101
  3. CYCLOPHOSPHAMIDE [Suspect]
     Indication: BREAST CANCER
     Dosage: 500 MG/M2, THREE COURSES
     Route: 042
     Dates: start: 20050901, end: 20050101
  4. FLUOROURACIL [Suspect]
     Indication: BREAST CANCER
     Dosage: 500 MG/M2, THREE COURSES
     Route: 042
     Dates: start: 20050901, end: 20050101
  5. TAXOTERE [Suspect]
     Indication: BREAST CANCER
     Dosage: THREE COURSES
     Route: 042
     Dates: start: 20050101, end: 20060101
  6. LOXAPAC [Suspect]
     Route: 048
  7. LEXOMIL [Suspect]
     Route: 048

REACTIONS (2)
  - ACUTE PULMONARY OEDEMA [None]
  - LEFT VENTRICULAR FAILURE [None]
